FAERS Safety Report 7018015-6 (Version None)
Quarter: 2010Q3

REPORT INFORMATION
  Report Type: 
  Country: None (occurrence: None)
  Receive Date: 20100928
  Receipt Date: 20100916
  Transmission Date: 20110219
  Serious: Yes (Other)
  Sender: FDA-Public Use
  Company Number: PHHY2010ZA61772

PATIENT
  Age: 78 Year
  Sex: Female

DRUGS (5)
  1. ACLASTA [Suspect]
     Dosage: 5 MG/100 ML
     Dates: start: 20090501
  2. CALCIUM [Concomitant]
  3. KANTREXIL [Concomitant]
  4. AUGMENTIN '125' [Concomitant]
  5. VITAMIN B [Concomitant]
     Dosage: UNK

REACTIONS (9)
  - FALL [None]
  - FOREARM FRACTURE [None]
  - FRACTURE [None]
  - HIP FRACTURE [None]
  - ILIUM FRACTURE [None]
  - INTERNAL FIXATION OF FRACTURE [None]
  - OPEN FRACTURE [None]
  - OSTEOARTHRITIS [None]
  - PELVIC FRACTURE [None]
